FAERS Safety Report 23259510 (Version 1)
Quarter: 2023Q4

REPORT INFORMATION
  Report Type: Spontaneous
  Country: US (occurrence: US)
  Receive Date: 20231204
  Receipt Date: 20231204
  Transmission Date: 20240110
  Serious: Yes (Other)
  Sender: FDA-Public Use
  Company Number: US-002147023-NVSC2023US252957

PATIENT
  Sex: Male

DRUGS (1)
  1. TRILEPTAL [Suspect]
     Active Substance: OXCARBAZEPINE
     Indication: Epilepsy
     Dosage: UNK UNK, TID
     Route: 065
     Dates: start: 20231111

REACTIONS (10)
  - Seizure [Unknown]
  - Condition aggravated [Unknown]
  - Stomatitis [Unknown]
  - Abdominal pain upper [Unknown]
  - Oropharyngeal pain [Unknown]
  - Irritability [Unknown]
  - Anger [Unknown]
  - Fatigue [Unknown]
  - Headache [Unknown]
  - Nausea [Unknown]
